FAERS Safety Report 5121751-X (Version None)
Quarter: 2006Q4

REPORT INFORMATION
  Report Type: 
  Country: None (occurrence: None)
  Receive Date: 20061006
  Receipt Date: 20060901
  Transmission Date: 20070319
  Serious: Yes (Other)
  Sender: FDA-Public Use
  Company Number: BR-ROCHE-461960

PATIENT
  Age: 25 Year
  Sex: Female
  Weight: 56 kg

DRUGS (4)
  1. ROACUTAN [Suspect]
     Indication: ACNE
     Route: 048
     Dates: start: 20051115, end: 20060615
  2. ROACUTAN [Suspect]
     Route: 048
     Dates: start: 20040615, end: 20040615
  3. RIVOTRIL [Concomitant]
     Indication: ANXIETY
     Route: 048
  4. VENLIFT [Concomitant]
     Indication: DEPRESSION
     Route: 048
     Dates: start: 20060215

REACTIONS (6)
  - DEPRESSIVE SYMPTOM [None]
  - DRY MOUTH [None]
  - HEADACHE [None]
  - HYDROCEPHALUS [None]
  - INTRACRANIAL PRESSURE INCREASED [None]
  - LIP DRY [None]
